FAERS Safety Report 5724547-0 (Version None)
Quarter: 2008Q2

REPORT INFORMATION
  Report Type: 
  Country: None (occurrence: None)
  Receive Date: 20080501
  Receipt Date: 20080421
  Transmission Date: 20081010
  Serious: Yes (Hospitalization)
  Sender: FDA-Public Use
  Company Number: FR-BAYER-200817167GPV

PATIENT
  Age: 16 Year
  Sex: Female

DRUGS (3)
  1. YASMIN [Suspect]
     Indication: CONTRACEPTION
     Route: 048
     Dates: end: 20080205
  2. GARDASIL [Suspect]
     Indication: IMMUNISATION
     Dosage: TOTAL DAILY DOSE: 1 DF
     Route: 030
     Dates: start: 20080111, end: 20080111
  3. MINOCYCLINE HYDROCHLORIDE [Suspect]
     Indication: ACNE
     Route: 048
     Dates: end: 20080205

REACTIONS (7)
  - ARTHRITIS [None]
  - JOINT SWELLING [None]
  - MYALGIA [None]
  - OEDEMA PERIPHERAL [None]
  - PRURITUS GENERALISED [None]
  - RASH PAPULAR [None]
  - STOMACH DISCOMFORT [None]
